FAERS Safety Report 8183037-9 (Version None)
Quarter: 2012Q1

REPORT INFORMATION
  Report Type: 
  Country: None (occurrence: None)
  Receive Date: 20120305
  Receipt Date: 20120229
  Transmission Date: 20120608
  Serious: Yes (Death, Hospitalization)
  Sender: FDA-Public Use
  Company Number: US-CELGENEUS-163-21880-12023156

PATIENT
  Age: 61 Year
  Sex: Male
  Weight: 85.5 kg

DRUGS (9)
  1. ASPIRIN [Concomitant]
     Route: 048
     Dates: start: 20111220
  2. VANCOMYCIN [Concomitant]
     Indication: ANTI-INFECTIVE THERAPY
     Route: 041
     Dates: start: 20111201
  3. METFORMIN HCL [Concomitant]
     Route: 065
  4. CLINDAMYCIN [Concomitant]
     Indication: ANTI-INFECTIVE THERAPY
     Route: 041
     Dates: start: 20111201
  5. REVLIMID [Suspect]
     Dosage: 25 MILLIGRAM
     Route: 048
     Dates: start: 20111213, end: 20111219
  6. DEXAMETHASONE [Suspect]
     Dosage: 20 MILLIGRAM
     Route: 048
     Dates: start: 20111213, end: 20111217
  7. ASPIRIN [Concomitant]
     Dosage: 325 MILLIGRAM
     Route: 048
     Dates: start: 20111213
  8. ZOSYN [Concomitant]
     Indication: ANTI-INFECTIVE THERAPY
     Route: 041
     Dates: start: 20111201
  9. BORTEZOMIB [Suspect]
     Dosage: 1.3 MILLIGRAM/SQ. METER
     Route: 041
     Dates: start: 20111213, end: 20111216

REACTIONS (2)
  - CLOSTRIDIUM DIFFICILE COLITIS [None]
  - SEPSIS [None]
